FAERS Safety Report 6218978-2 (Version None)
Quarter: 2009Q2

REPORT INFORMATION
  Report Type: 
  Country: None (occurrence: None)
  Receive Date: 20090608
  Receipt Date: 20090602
  Transmission Date: 20091009
  Serious: Yes (Death, Other)
  Sender: FDA-Public Use
  Company Number: PHHY2009FR21564

PATIENT
  Age: 9 Year
  Sex: Female
  Weight: 25.6 kg

DRUGS (8)
  1. NEORAL [Suspect]
     Indication: NEPHROTIC SYNDROME
     Dosage: 100 MG/DAY
     Route: 048
  2. NEORAL [Suspect]
     Dosage: 150 MG/DAY
     Route: 048
  3. SANDIMMUNE [Suspect]
     Indication: NEPHROTIC SYNDROME
     Dosage: 35 MG/DAY
     Route: 042
  4. WARFARIN [Concomitant]
  5. METHYLPREDNISOLONE [Concomitant]
     Indication: NEPHROTIC SYNDROME
     Dosage: 500 MG/1.73 M^2
  6. RITUXIMAB [Concomitant]
     Indication: NEPHROTIC SYNDROME
     Dosage: 375 MG/M^2
  7. PREDNISONE [Concomitant]
     Indication: NEPHROTIC SYNDROME
     Dosage: 50 MG DAILY
  8. PREDNISONE [Concomitant]
     Dosage: 60 MG

REACTIONS (18)
  - ANURIA [None]
  - ASCITES [None]
  - BLOOD PRESSURE INCREASED [None]
  - CHEST PAIN [None]
  - EPISTAXIS [None]
  - HYPONATRAEMIA [None]
  - HYPOVOLAEMIA [None]
  - HYPOXIA [None]
  - LUNG DISORDER [None]
  - OEDEMA [None]
  - PLEURAL EFFUSION [None]
  - PULMONARY FIBROSIS [None]
  - PULMONARY HAEMORRHAGE [None]
  - RENAL FAILURE [None]
  - RESPIRATORY DISTRESS [None]
  - RESPIRATORY SYNCYTIAL VIRUS INFECTION [None]
  - TACHYCARDIA [None]
  - TACHYPNOEA [None]
